FAERS Safety Report 5103256-5 (Version None)
Quarter: 2006Q3

REPORT INFORMATION
  Report Type: 
  Country: None (occurrence: None)
  Receive Date: 20060913
  Receipt Date: 20060828
  Transmission Date: 20061208
  Serious: Yes (Hospitalization, Congenital Anomaly, Other)
  Sender: FDA-Public Use
  Company Number: PHBS2006JP13183

PATIENT
  Age: 1 Day
  Sex: Male

DRUGS (3)
  1. DIOVAN [Suspect]
     Route: 064
  2. CONIEL [Concomitant]
     Route: 064
     Dates: start: 20050401, end: 20060825
  3. EUGLUCON [Concomitant]
     Route: 064
     Dates: start: 20050401, end: 20060825

REACTIONS (11)
  - ANURIA [None]
  - DRUG EXPOSURE DURING PREGNANCY [None]
  - HEPATIC FUNCTION ABNORMAL [None]
  - HYPERKALAEMIA [None]
  - HYPOTENSION [None]
  - METABOLIC ACIDOSIS [None]
  - NEONATAL ASPHYXIA [None]
  - NEONATAL RESPIRATORY FAILURE [None]
  - NEPHROCALCINOSIS [None]
  - PULMONARY HAEMORRHAGE [None]
  - PULMONARY HYPOPLASIA [None]
